FAERS Safety Report 18724479 (Version 1)
Quarter: 2021Q1

REPORT INFORMATION
  Report Type: Spontaneous
  Country: FR (occurrence: FR)
  Receive Date: 20210111
  Receipt Date: 20210111
  Transmission Date: 20210419
  Serious: Yes (Hospitalization)
  Sender: FDA-Public Use
  Company Number: FR-TEVA-2021-FR-1866671

PATIENT
  Age: 28 Year
  Sex: Male
  Weight: 70.5 kg

DRUGS (11)
  1. NEFOPAM (CHLORHYDRATE DE) [Concomitant]
     Active Substance: NEFOPAM HYDROCHLORIDE
  2. DIFFU K [Concomitant]
     Active Substance: POTASSIUM CHLORIDE
  3. TAMSULOSINE [Concomitant]
     Active Substance: TAMSULOSIN HYDROCHLORIDE
  4. ACTISKENAN [Concomitant]
     Active Substance: MORPHINE SULFATE
  5. VERSATIS [Concomitant]
     Active Substance: LIDOCAINE
  6. DAFALGAN [Concomitant]
     Active Substance: ACETAMINOPHEN
  7. ACIDE FOLIQUE [Concomitant]
     Active Substance: FOLIC ACID
  8. SKENAN [Concomitant]
     Active Substance: MORPHINE SULFATE
  9. KETOPROFENE [Suspect]
     Active Substance: KETOPROFEN
     Indication: PAIN
     Dosage: 200MG
     Route: 048
     Dates: start: 20201027, end: 20201210
  10. INNOHEP [Interacting]
     Active Substance: TINZAPARIN SODIUM
     Indication: PULMONARY EMBOLISM
     Dosage: 14000IU
     Route: 058
     Dates: start: 20200812, end: 20201209
  11. MACROGOL (DISTEARATE DE) [Concomitant]
     Active Substance: POLYETHYLENE GLYCOLS

REACTIONS (3)
  - Anaemia [Recovering/Resolving]
  - Drug interaction [Unknown]
  - Adrenal haematoma [Recovering/Resolving]

NARRATIVE: CASE EVENT DATE: 20201209
